FAERS Safety Report 5839625-5 (Version None)
Quarter: 2008Q3

REPORT INFORMATION
  Report Type: 
  Country: None (occurrence: None)
  Receive Date: 20080811
  Receipt Date: 20080731
  Transmission Date: 20090109
  Serious: Yes (Hospitalization)
  Sender: FDA-Public Use
  Company Number: US-JNJFOC-20061002134

PATIENT
  Sex: Female
  Weight: 68.49 kg

DRUGS (1)
  1. ORTHO EVRA [Suspect]
     Indication: CONTRACEPTION
     Route: 062

REACTIONS (6)
  - BRONCHITIS [None]
  - PALPITATIONS [None]
  - PULMONARY EMBOLISM [None]
  - PULMONARY INFARCTION [None]
  - SARCOIDOSIS [None]
  - TACHYCARDIA [None]
